FAERS Safety Report 7871893-0 (Version None)
Quarter: 2011Q4

REPORT INFORMATION
  Report Type: 
  Country: None (occurrence: None)
  Receive Date: 20111029
  Receipt Date: 20110309
  Transmission Date: 20120403
  Serious: No
  Sender: FDA-Public Use
  Company Number: US-AMGEN-USASP2011013171

PATIENT
  Sex: Female

DRUGS (4)
  1. ENBREL [Suspect]
     Indication: PSORIATIC ARTHROPATHY
     Dates: start: 20060912
  2. HUMIRA [Concomitant]
  3. REMICADE [Concomitant]
  4. ENBREL [Suspect]
     Indication: PSORIASIS

REACTIONS (3)
  - THERAPEUTIC RESPONSE DECREASED [None]
  - PAIN [None]
  - DRUG INEFFECTIVE [None]
